FAERS Safety Report 5387347-X (Version None)
Quarter: 2007Q3

REPORT INFORMATION
  Report Type: 
  Country: None (occurrence: None)
  Receive Date: 20070711
  Receipt Date: 20070625
  Transmission Date: 20080115
  Serious: Yes (Other)
  Sender: FDA-Public Use
  Company Number: 158459ISR

PATIENT
  Age: 48 Year
  Sex: Male

DRUGS (8)
  1. BECLOMETHASONE DIPROPIONATE [Suspect]
     Indication: ASTHMA
     Dosage: (1 IN 12 HR), RESPIRATORY (INHALATION)
     Route: 055
  2. FORMOTEROL FUMARATE [Suspect]
     Indication: ASTHMA
     Dosage: (2 IN 1 D), RESPIRATORY (INHALATION)
     Route: 055
  3. FORMOTEROL FUMARATE W/ BUDESONIDE [Suspect]
  4. DEXAMETHASONE 0.5MG TAB [Concomitant]
  5. LEVOFLOXACIN [Concomitant]
  6. DIAZEPAM [Concomitant]
  7. BRIMONIDINE TARTARATE [Concomitant]
  8. SALBUTAMOL [Concomitant]

REACTIONS (1)
  - MENINGITIS BACTERIAL [None]
